FAERS Safety Report 5056243-X (Version None)
Quarter: 2006Q3

REPORT INFORMATION
  Report Type: 
  Country: None (occurrence: None)
  Receive Date: 20060720
  Receipt Date: 20060717
  Transmission Date: 20061208
  Serious: Yes (Death)
  Sender: FDA-Public Use
  Company Number: 2006CG01244

PATIENT
  Age: 27 Year
  Sex: Male

DRUGS (2)
  1. PROPOFOL [Suspect]
     Route: 042
  2. LIDOCAINE [Concomitant]

REACTIONS (3)
  - ACUTE PULMONARY OEDEMA [None]
  - DRUG ABUSER [None]
  - PANCREATITIS HAEMORRHAGIC [None]
